FAERS Safety Report 11480479 (Version 1)
Quarter: 2015Q3

REPORT INFORMATION
  Report Type: Spontaneous
  Country: US (occurrence: US)
  Receive Date: 20150909
  Receipt Date: 20150909
  Transmission Date: 20151125
  Serious: No
  Sender: FDA-Public Use
  Company Number: US-JAZZ-2014-US-014265

PATIENT
  Sex: Female
  Weight: 78.91 kg

DRUGS (15)
  1. OXYCONTIN [Concomitant]
     Active Substance: OXYCODONE HYDROCHLORIDE
     Indication: COMPLEX REGIONAL PAIN SYNDROME
     Dosage: 15 MG, BID
     Route: 048
     Dates: start: 20131226
  2. TIZANIDINE. [Concomitant]
     Active Substance: TIZANIDINE
     Indication: MIGRAINE WITH AURA
     Dosage: 4 MG, Q4H
     Route: 048
     Dates: start: 20140708
  3. VICOPROFEN [Concomitant]
     Active Substance: HYDROCODONE BITARTRATE\IBUPROFEN
     Indication: COMPLEX REGIONAL PAIN SYNDROME
     Dosage: 1 TAB, BID PRN
     Route: 048
     Dates: start: 20140708
  4. GRALISE [Concomitant]
     Active Substance: GABAPENTIN
     Indication: COMPLEX REGIONAL PAIN SYNDROME
     Dosage: 600 MG, TID
     Route: 048
     Dates: start: 20130218
  5. XYREM [Suspect]
     Active Substance: SODIUM OXYBATE
     Dosage: DOSAGE ADJUSTMENTS
     Route: 048
  6. EPIPEN [Concomitant]
     Active Substance: EPINEPHRINE
     Indication: PRODUCT USED FOR UNKNOWN INDICATION
     Dosage: UNK
     Route: 030
     Dates: start: 20130723
  7. NAPROXEN SODIUM. [Concomitant]
     Active Substance: NAPROXEN SODIUM
     Indication: MIGRAINE WITH AURA
     Dosage: 550 MG, Q4H
     Route: 048
     Dates: start: 20140708
  8. XYREM [Suspect]
     Active Substance: SODIUM OXYBATE
     Indication: NARCOLEPSY
     Dosage: 2.25 G, BID
     Route: 048
     Dates: start: 201405, end: 2014
  9. AMPHETAMINE-DEXTROAMPHETAMINE [Concomitant]
     Active Substance: AMPHETAMINE SULFATE\DEXTROAMPHETAMINE
     Indication: NARCOLEPSY
     Dosage: 30 MG, BID
     Route: 048
     Dates: start: 20140217
  10. CYCLOBENZAPRINE [Concomitant]
     Active Substance: CYCLOBENZAPRINE
     Indication: COMPLEX REGIONAL PAIN SYNDROME
     Dosage: 5MG TO 10 MG, TID
     Route: 048
     Dates: start: 20131024
  11. DIAZEPAM. [Concomitant]
     Active Substance: DIAZEPAM
     Indication: COMPLEX REGIONAL PAIN SYNDROME
     Dosage: 10 MG, QID
     Route: 048
     Dates: start: 20120905
  12. CHLORPROMAZINE. [Concomitant]
     Active Substance: CHLORPROMAZINE
     Indication: MIGRAINE WITH AURA
     Dosage: 25 MG, Q4H PRN
     Route: 048
     Dates: start: 20140708
  13. LISINOPRIL. [Concomitant]
     Active Substance: LISINOPRIL
     Indication: HYPERTENSION
     Dosage: 5 MG, QD
     Route: 048
     Dates: start: 20140708
  14. XYREM [Suspect]
     Active Substance: SODIUM OXYBATE
     Dosage: 4.5 G, BID
     Route: 048
     Dates: start: 201410
  15. GRALISE [Concomitant]
     Active Substance: GABAPENTIN
     Dosage: 600 MG, QID
     Route: 048
     Dates: end: 2013

REACTIONS (8)
  - Attention deficit/hyperactivity disorder [Unknown]
  - Pain in extremity [Unknown]
  - Arthralgia [Unknown]
  - Anxiety [Unknown]
  - Pain [Unknown]
  - Migraine [Unknown]
  - Dyspepsia [Unknown]
  - Restless legs syndrome [Unknown]
